FAERS Safety Report 16922363 (Version 1)
Quarter: 2019Q4

REPORT INFORMATION
  Report Type: Report from Study
  Country: None (occurrence: US)
  Receive Date: 20191016
  Receipt Date: 20191016
  Transmission Date: 20200122
  Serious: Yes (Hospitalization, Other)
  Sender: FDA-Public Use
  Company Number: US-ABBVIE-19K-163-2963011-00

PATIENT
  Age: 52 Year
  Sex: Male

DRUGS (1)
  1. CREON [Suspect]
     Active Substance: PANCRELIPASE AMYLASE\PANCRELIPASE LIPASE\PANCRELIPASE PROTEASE
     Indication: PRODUCT USED FOR UNKNOWN INDICATION
     Route: 048

REACTIONS (8)
  - Hypophagia [Unknown]
  - Brain operation [Unknown]
  - Spinal operation [Unknown]
  - Nephrectomy [Unknown]
  - Wrist surgery [Unknown]
  - Hernia [Unknown]
  - Neck surgery [Unknown]
  - Renal cancer stage IV [Unknown]

NARRATIVE: CASE EVENT DATE: 20150917
